FAERS Safety Report 7632038-5 (Version None)
Quarter: 2011Q3

REPORT INFORMATION
  Report Type: 
  Country: None (occurrence: None)
  Receive Date: 20110725
  Receipt Date: 20100610
  Transmission Date: 20111222
  Serious: No
  Sender: FDA-Public Use
  Company Number: US-BRISTOL-MYERS SQUIBB COMPANY-15135759

PATIENT
  Sex: Male

DRUGS (2)
  1. COUMADIN [Suspect]
     Indication: COAGULOPATHY
     Dosage: 4MG TABS
  2. PEPCID [Interacting]

REACTIONS (3)
  - OEDEMA PERIPHERAL [None]
  - DRUG INTERACTION [None]
  - FALL [None]
